FAERS Safety Report 15147880 (Version 2)
Quarter: 2018Q3

REPORT INFORMATION
  Report Type: Report from Study
  Country: US (occurrence: US)
  Receive Date: 20180716
  Receipt Date: 20180822
  Transmission Date: 20181010
  Serious: Yes (Other)
  Sender: FDA-Public Use
  Company Number: US-BIOGEN-2018BI00608522

PATIENT
  Age: 70 Year
  Sex: Male
  Weight: 102.15 kg

DRUGS (2)
  1. TECFIDERA [Suspect]
     Active Substance: DIMETHYL FUMARATE
     Indication: MULTIPLE SCLEROSIS
     Route: 048
     Dates: start: 20150121, end: 20150221
  2. TECFIDERA [Suspect]
     Active Substance: DIMETHYL FUMARATE
     Route: 048
     Dates: start: 20150221, end: 20180521

REACTIONS (2)
  - Malignant melanoma [Recovered/Resolved]
  - Lymphopenia [Unknown]

NARRATIVE: CASE EVENT DATE: 201805
